FAERS Safety Report 10927886 (Version 1)
Quarter: 2015Q1

REPORT INFORMATION
  Report Type: Spontaneous
  Country: GB (occurrence: GB)
  Receive Date: 20150319
  Receipt Date: 20150319
  Transmission Date: 20150721
  Serious: Yes (Life-Threatening)
  Sender: FDA-Public Use
  Company Number: GB-AUROBINDO-AUR-APL-2015-02364

PATIENT
  Age: 67 Year
  Sex: Female
  Weight: 53.5 kg

DRUGS (1)
  1. ALENDRONIC ACID 70 [Suspect]
     Active Substance: ALENDRONIC ACID
     Indication: OSTEOPOROSIS
     Dosage: 70 MG, EVERY WEEK
     Route: 048
     Dates: start: 20140731, end: 20141221

REACTIONS (1)
  - Renal haemorrhage [Recovered/Resolved]

NARRATIVE: CASE EVENT DATE: 20121214
